FAERS Safety Report 9984543 (Version 1)
Quarter: 2014Q1

REPORT INFORMATION
  Report Type: Spontaneous
  Country: US (occurrence: US)
  Receive Date: 20140307
  Receipt Date: 20140307
  Transmission Date: 20141002
  Serious: Yes (Other)
  Sender: FDA-Public Use
  Company Number: US-JNJFOC-20140301043

PATIENT
  Sex: Female
  Weight: 88.45 kg

DRUGS (5)
  1. REMICADE [Suspect]
     Indication: CROHN^S DISEASE
     Route: 042
  2. REMICADE [Suspect]
     Indication: CROHN^S DISEASE
     Dosage: 5 UNITS
     Route: 042
     Dates: start: 2013
  3. TRAMADOL [Concomitant]
     Indication: PAIN
     Route: 065
     Dates: start: 2013
  4. COCONUT OIL [Concomitant]
     Route: 065
  5. MULTIVITAMINS [Concomitant]
     Indication: PROPHYLAXIS
     Route: 065

REACTIONS (4)
  - Depression [Not Recovered/Not Resolved]
  - Crohn^s disease [Not Recovered/Not Resolved]
  - Arthralgia [Not Recovered/Not Resolved]
  - Acne [Not Recovered/Not Resolved]
